FAERS Safety Report 10348938 (Version 2)
Quarter: 2014Q3

REPORT INFORMATION
  Report Type: Report from Study
  Country: US (occurrence: US)
  Receive Date: 20140729
  Receipt Date: 20140729
  Transmission Date: 20150326
  Serious: No
  Sender: FDA-Public Use
  Company Number: US-009507513-1407USA013397

PATIENT

DRUGS (7)
  1. RECOMBINANT HUMAN INTERLEUKIN-2 (125ALA) [Suspect]
     Active Substance: ALDESLEUKIN
     Dosage: 50 % (18000000 IU/M2) INTRAVENOUSLY OVER 15-30 MINUTES FOR 3 DAYS FOR 6 CONSECUTIVE WEEKS
     Route: 042
  2. MEPERIDINE HYDROCHLORIDE. [Concomitant]
     Active Substance: MEPERIDINE HYDROCHLORIDE
     Dosage: 25 MG, QD
     Route: 042
  3. ONDANSETRON HYDROCHLORIDE. [Concomitant]
     Active Substance: ONDANSETRON HYDROCHLORIDE
     Dosage: 16 MG, QD
     Route: 042
  4. ACETAMINOPHEN. [Concomitant]
     Active Substance: ACETAMINOPHEN
     Dosage: 650 MG, QD
     Route: 048
  5. IBUPROFEN. [Concomitant]
     Active Substance: IBUPROFEN
     Dosage: 400 MG, QD
     Route: 048
  6. RECOMBINANT HUMAN INTERLEUKIN-2 (125ALA) [Suspect]
     Active Substance: ALDESLEUKIN
     Indication: CLEAR CELL RENAL CELL CARCINOMA
     Dosage: 18000000 IU/M2 INTRAVENOUSLY OVER 15-30 MINUTES FOR 3 DAYS FOR 6 CONSECUTIVE WEEKS
     Route: 042
  7. FAMOTIDINE. [Suspect]
     Active Substance: FAMOTIDINE
     Indication: CLEAR CELL RENAL CELL CARCINOMA
     Dosage: 20 MG, IV DAILY FOR 3 DAYS FOR 6 CONSECUTIVE WEEKS
     Route: 042

REACTIONS (1)
  - Hypotension [Unknown]
